FAERS Safety Report 22540437 (Version 2)
Quarter: 2023Q2

REPORT INFORMATION
  Report Type: Report from Study
  Country: NL (occurrence: None)
  Receive Date: 20230609
  Receipt Date: 20230622
  Transmission Date: 20230721
  Serious: Yes (Hospitalization)
  Sender: FDA-Public Use
  Company Number: NL-ROCHE-3362751

PATIENT
  Age: 59 Year
  Sex: Female

DRUGS (3)
  1. ATEZOLIZUMAB [Suspect]
     Active Substance: ATEZOLIZUMAB
     Indication: Triple negative breast cancer
     Dosage: LAST DOSE ON 20/DEC/2022?DAY 1,15, 4 WEEKLY
     Route: 041
     Dates: start: 20221108
  2. PACLITAXEL [Suspect]
     Active Substance: PACLITAXEL
     Indication: Triple negative breast cancer
     Dosage: LAST DOSE ON 18/APR/2023?D1, 8, 15 Q 4 WEEKS
     Route: 042
     Dates: start: 20221108
  3. DEXAMETHASONE [Concomitant]
     Active Substance: DEXAMETHASONE
     Dates: start: 20230531

REACTIONS (1)
  - Cauda equina syndrome [Unknown]

NARRATIVE: CASE EVENT DATE: 20230516
